FAERS Safety Report 7590393-9 (Version None)
Quarter: 2011Q3

REPORT INFORMATION
  Report Type: 
  Country: None (occurrence: None)
  Receive Date: 20110705
  Receipt Date: 20110623
  Transmission Date: 20111222
  Serious: Yes (Other)
  Sender: FDA-Public Use
  Company Number: PHHY2011NL55511

PATIENT
  Sex: Male
  Weight: 75 kg

DRUGS (1)
  1. AMOXICILLIN AND CLAVULANATE POTASSIUM [Suspect]
     Indication: URINARY TRACT INFECTION
     Dosage: 1 DF, TID
     Route: 048
     Dates: start: 20101002

REACTIONS (6)
  - SUICIDAL IDEATION [None]
  - DISTURBANCE IN ATTENTION [None]
  - AGGRESSION [None]
  - PRURITUS [None]
  - TOOTH DISCOLOURATION [None]
  - ANXIETY [None]
